FAERS Safety Report 23796691 (Version 3)
Quarter: 2025Q3

REPORT INFORMATION
  Report Type: Report from Study
  Country: GB (occurrence: GB)
  Receive Date: 20240430
  Receipt Date: 20250929
  Transmission Date: 20251020
  Serious: Yes (Other)
  Sender: TAKEDA
  Company Number: GB-TAKEDA-2023TUS041397

PATIENT
  Age: 18 Year
  Sex: Female

DRUGS (2)
  1. VEDOLIZUMAB [Suspect]
     Active Substance: VEDOLIZUMAB
     Indication: Crohn^s disease
     Dosage: 108 MILLIGRAM, Q2WEEKS
     Dates: start: 202212
  2. VEDOLIZUMAB [Suspect]
     Active Substance: VEDOLIZUMAB

REACTIONS (12)
  - Crohn^s disease [Unknown]
  - Neck pain [Unknown]
  - Injection site swelling [Unknown]
  - Device leakage [Unknown]
  - Injection site erythema [Unknown]
  - Arthralgia [Unknown]
  - Injection site mass [Unknown]
  - Injection site warmth [Unknown]
  - Injection site rash [Unknown]
  - Device issue [Unknown]
  - Injection site pruritus [Unknown]
  - Headache [Unknown]
